FAERS Safety Report 4470662-1 (Version None)
Quarter: 2004Q4

REPORT INFORMATION
  Report Type: 
  Country: None (occurrence: None)
  Receive Date: 20041005
  Receipt Date: 20040922
  Transmission Date: 20050328
  Serious: Yes (Hospitalization)
  Sender: FDA-Public Use
  Company Number: 2004069958

PATIENT
  Age: 29 Year
  Sex: Female

DRUGS (2)
  1. SERTRALINE (SERTRALINE) [Suspect]
     Indication: BRIEF PSYCHOTIC DISORDER, WITH POSTPARTUM ONSET
     Dosage: 50 MG )50 MG, 1 IN 1 D), ORAL
     Route: 048
  2. OLANZAPINE [Suspect]
     Indication: BRIEF PSYCHOTIC DISORDER, WITH POSTPARTUM ONSET
     Dosage: 5 MG (5 MG, 1 IN 1 D), ORAL
     Route: 048

REACTIONS (11)
  - DECREASED APPETITE [None]
  - DELUSION OF REFERENCE [None]
  - DEPRESSED MOOD [None]
  - DEPRESSIVE SYMPTOM [None]
  - FATIGUE [None]
  - HEADACHE [None]
  - INSOMNIA [None]
  - PARANOIA [None]
  - PERSECUTORY DELUSION [None]
  - SELF ESTEEM DECREASED [None]
  - THINKING ABNORMAL [None]
